FAERS Safety Report 14266122 (Version 6)
Quarter: 2018Q2

REPORT INFORMATION
  Report Type: Spontaneous
  Country: IT (occurrence: IT)
  Receive Date: 20171209
  Receipt Date: 20180621
  Transmission Date: 20180711
  Serious: Yes (Hospitalization, Other)
  Sender: FDA-Public Use
  Company Number: IT-MYLANLABS-2017M1075665

PATIENT
  Age: 45 Year
  Sex: Male

DRUGS (35)
  1. ATAZANAVIR SULFATE. [Interacting]
     Active Substance: ATAZANAVIR SULFATE
     Indication: HIV INFECTION
     Dosage: 300 MG, UNK
     Route: 048
     Dates: start: 20091007, end: 20150722
  2. ATAZANAVIR SULFATE. [Interacting]
     Active Substance: ATAZANAVIR SULFATE
     Indication: CHRONIC HEPATITIS C
  3. LAMIVUDINE. [Interacting]
     Active Substance: LAMIVUDINE
     Indication: CHRONIC HEPATITIS C
     Dosage: UNK
     Route: 065
  4. DAKLINZA [Suspect]
     Active Substance: DACLATASVIR
     Indication: HEPATITIS C
     Dosage: 30 MG, QD
     Route: 048
     Dates: start: 20150603, end: 20150622
  5. TALOFEN [Concomitant]
     Active Substance: PROMAZINE HYDROCHLORIDE
     Indication: PRODUCT USED FOR UNKNOWN INDICATION
     Dosage: 1 DF, UNK
     Route: 048
  6. DAKLINZA [Suspect]
     Active Substance: DACLATASVIR
     Dosage: BLISTER PACK (PVC/PCTFE/AL)-28 TABLETSUNK
  7. DIBASE [Concomitant]
     Active Substance: CHOLECALCIFEROL
     Indication: PRODUCT USED FOR UNKNOWN INDICATION
     Route: 048
  8. RIBAVIRIN. [Interacting]
     Active Substance: RIBAVIRIN
     Indication: HIV INFECTION
     Dosage: 1000 MG, UNK
     Route: 065
     Dates: start: 20150603, end: 20150827
  9. LAMIVUDINE. [Interacting]
     Active Substance: LAMIVUDINE
     Indication: HIV INFECTION
     Route: 048
  10. SOVALDI [Interacting]
     Active Substance: SOFOSBUVIR
     Indication: PRODUCT USED FOR UNKNOWN INDICATION
  11. TRUVADA [Concomitant]
     Active Substance: EMTRICITABINE\TENOFOVIR DISOPROXIL FUMARATE
     Indication: HIV INFECTION
     Route: 048
  12. DACLATASVIR. [Interacting]
     Active Substance: DACLATASVIR
     Indication: HIV INFECTION
     Dosage: 30 MG, QD
     Dates: start: 20150603, end: 20150722
  13. REYATAZ [Suspect]
     Active Substance: ATAZANAVIR SULFATE
     Dosage: MG BOTTLE(HIGH DENSITY POLYETHYLENE)30 CAPSULES
  14. TALOFEN [Concomitant]
     Active Substance: PROMAZINE HYDROCHLORIDE
     Dosage: 20 GTT, UNK
  15. RITONAVIR. [Interacting]
     Active Substance: RITONAVIR
     Indication: CHRONIC HEPATITIS C
  16. COPEGUS [Suspect]
     Active Substance: RIBAVIRIN
     Indication: HEPATITIS C
     Dosage: 200 MG, UNK
     Route: 048
     Dates: start: 20150603, end: 20150827
  17. KIVEXA [Suspect]
     Active Substance: ABACAVIR SULFATE\LAMIVUDINE
     Indication: CHRONIC HEPATITIS C
     Dosage: 1 DF, UNK
     Route: 048
  18. PERIDON                            /00498201/ [Concomitant]
     Active Substance: DOMPERIDONE
     Indication: NAUSEA
     Route: 048
  19. ABACAVIR. [Interacting]
     Active Substance: ABACAVIR
     Indication: CHRONIC HEPATITIS C
  20. DACLATASVIR. [Interacting]
     Active Substance: DACLATASVIR
     Indication: CHRONIC HEPATITIS C
     Dosage: 60 MG, UNK
  21. KIVEXA [Suspect]
     Active Substance: ABACAVIR SULFATE\LAMIVUDINE
     Indication: HIV INFECTION
     Dosage: 30X300+600 MG TABLETS IN PVC/PVDC/AL BLISTER PACKUNK
  22. EMTRICITABINE/TENOFOVIR DISOPROXIL FUMARATE [Suspect]
     Active Substance: EMTRICITABINE\TENOFOVIR DISOPROXIL FUMARATE
     Indication: HIV INFECTION
  23. RIBAVIRIN. [Interacting]
     Active Substance: RIBAVIRIN
     Dosage: 1200 MG, UNK
     Route: 048
     Dates: start: 20150603, end: 20151111
  24. ABACAVIR. [Interacting]
     Active Substance: ABACAVIR
     Indication: HIV INFECTION
     Dosage: 1 DF, UNK
     Route: 048
  25. SOVALDI [Interacting]
     Active Substance: SOFOSBUVIR
     Indication: HIV INFECTION
     Dosage: 400 MG
     Route: 048
  26. SOVALDI [Interacting]
     Active Substance: SOFOSBUVIR
     Indication: HEPATITIS C
     Dosage: 60 MG, UNK
  27. SOVALDI [Interacting]
     Active Substance: SOFOSBUVIR
     Indication: CHRONIC HEPATITIS C
     Dosage: MG BOTTLE, (HDPE)28 TABLETS UNK
  28. COPEGUS [Suspect]
     Active Substance: RIBAVIRIN
     Indication: PRODUCT USED FOR UNKNOWN INDICATION
     Dosage: UNK
     Route: 065
  29. DAKLINZA [Suspect]
     Active Substance: DACLATASVIR
     Dosage: 60 MG, QD
     Route: 048
  30. REYATAZ [Suspect]
     Active Substance: ATAZANAVIR SULFATE
     Indication: HIV INFECTION
     Dosage: 300 MG, UNK
     Route: 048
     Dates: start: 20091007, end: 20150722
  31. NEORECORMON [Concomitant]
     Active Substance: ERYTHROPOIETIN
     Indication: ANAEMIA
     Route: 065
  32. GAVISCON ADVANCE [Concomitant]
     Active Substance: POTASSIUM BICARBONATE\SODIUM ALGINATE
     Indication: DYSPEPSIA
     Route: 048
  33. RIBAVIRIN. [Interacting]
     Active Substance: RIBAVIRIN
     Indication: CHRONIC HEPATITIS C
     Dosage: 600 MG, UNK
  34. RITONAVIR. [Interacting]
     Active Substance: RITONAVIR
     Indication: HIV INFECTION
     Dosage: 100 MG, UNK
     Route: 048
     Dates: start: 20091007, end: 20150722
  35. LAEVOLAC EPS [Concomitant]
     Indication: PRODUCT USED FOR UNKNOWN INDICATION
     Route: 051

REACTIONS (8)
  - Cholelithiasis [Recovered/Resolved]
  - Drug interaction [Recovered/Resolved]
  - Anaemia [Recovered/Resolved]
  - Renal disorder [Recovered/Resolved]
  - Hyperbilirubinaemia [Recovering/Resolving]
  - Haemoglobin decreased [Not Recovered/Not Resolved]
  - Nephrolithiasis [Recovered/Resolved]
  - Jaundice [Unknown]
